FAERS Safety Report 11647449 (Version 1)
Quarter: 2015Q4

REPORT INFORMATION
  Report Type: Spontaneous
  Country: US (occurrence: None)
  Receive Date: 20151019
  Receipt Date: 20151019
  Transmission Date: 20160304
  Serious: Yes (Disabling)
  Sender: FDA-Public Use
  Company Number: None

PATIENT
  Age: 48 Year
  Sex: Female
  Weight: 95.26 kg

DRUGS (3)
  1. MAG-OXIDE [Concomitant]
  2. TRIAMTERENE. [Concomitant]
     Active Substance: TRIAMTERENE
  3. MYRBETRIQ [Suspect]
     Active Substance: MIRABEGRON
     Indication: URINARY INCONTINENCE
     Route: 048
     Dates: start: 20150901, end: 20151009

REACTIONS (9)
  - Respiratory disorder [None]
  - Retching [None]
  - Dyspnoea [None]
  - Nasopharyngitis [None]
  - Sinus disorder [None]
  - Asthma [None]
  - Cough [None]
  - Respiratory tract congestion [None]
  - Secretion discharge [None]

NARRATIVE: CASE EVENT DATE: 20091015
